FAERS Safety Report 9098343 (Version 4)
Quarter: 2013Q3

REPORT INFORMATION
  Report Type: Report from Study
  Country: AU (occurrence: AU)
  Receive Date: 20130213
  Receipt Date: 20130820
  Transmission Date: 20140515
  Serious: Yes (Hospitalization)
  Sender: FDA-Public Use
  Company Number: PHHY2013AU013102

PATIENT
  Age: 34 Year
  Sex: Female
  Weight: 70 kg

DRUGS (8)
  1. CLOZARIL [Suspect]
     Indication: SCHIZOAFFECTIVE DISORDER
     Dosage: 150 MG, UNK
     Route: 048
     Dates: start: 20060919
  2. CLOZARIL [Suspect]
     Dosage: 50 MG, UNK
  3. CLOZARIL [Suspect]
     Dosage: 150 MG, UNK
  4. CLOZARIL [Suspect]
     Dosage: 200 MG
     Route: 048
     Dates: start: 20130207
  5. CLOZARIL [Suspect]
     Dosage: 150 MG
     Route: 048
     Dates: start: 20130225
  6. LITHIUM CARBONATE [Concomitant]
     Indication: SCHIZOAFFECTIVE DISORDER
     Dosage: 450 MG, BID
     Route: 048
     Dates: start: 20130207
  7. LITHIUM CARBONATE [Concomitant]
     Dosage: 450 MG, NOCTE
  8. CALCIUM [Concomitant]
     Indication: VITAMIN D DEFICIENCY
     Dosage: UNK UKN, QD
     Route: 048

REACTIONS (9)
  - Mania [Recovering/Resolving]
  - Pressure of speech [Recovering/Resolving]
  - Schizoaffective disorder [Recovering/Resolving]
  - Delusion [Unknown]
  - Insomnia [Unknown]
  - Normal newborn [Unknown]
  - Maternal exposure during pregnancy [Unknown]
  - Antipsychotic drug level below therapeutic [Unknown]
  - Exposure during breast feeding [Unknown]
